FAERS Safety Report 8565388-9 (Version None)
Quarter: 2012Q3

REPORT INFORMATION
  Report Type: 
  Country: None (occurrence: None)
  Receive Date: 20120803
  Receipt Date: 20120725
  Transmission Date: 20120928
  Serious: Yes (Hospitalization, Other)
  Sender: FDA-Public Use
  Company Number: US-CELGENEUS-163-21880-12050099

PATIENT
  Sex: Male

DRUGS (5)
  1. REVLIMID [Suspect]
     Dosage: 25 MILLIGRAM
     Route: 048
     Dates: start: 20110101
  2. REVLIMID [Suspect]
     Dosage: 25-15MG
     Route: 048
     Dates: start: 20090501
  3. REVLIMID [Suspect]
     Dosage: 10 MILLIGRAM
     Route: 048
     Dates: start: 20120701
  4. REVLIMID [Suspect]
     Indication: MULTIPLE MYELOMA
     Dosage: 15 MILLIGRAM
     Route: 048
     Dates: start: 20090201
  5. REVLIMID [Suspect]
     Dosage: 25 MILLIGRAM
     Route: 048
     Dates: start: 20120301

REACTIONS (4)
  - HAEMORRHAGE [None]
  - BONE MARROW FAILURE [None]
  - SINUSITIS [None]
  - PLATELET COUNT DECREASED [None]
